FAERS Safety Report 5142445-0 (Version None)
Quarter: 2006Q4

REPORT INFORMATION
  Report Type: 
  Country: None (occurrence: None)
  Receive Date: 20061027
  Receipt Date: 20061018
  Transmission Date: 20070319
  Serious: Yes (Other)
  Sender: FDA-Public Use
  Company Number: 163-21880-06070054

PATIENT
  Age: 72 Year
  Sex: Female

DRUGS (6)
  1. REVLIMID [Suspect]
     Indication: MYELODYSPLASTIC SYNDROME
     Dosage: 5 MG, DAILY, ORAL
     Route: 048
     Dates: start: 20060612
  2. ALLOPURINOL [Concomitant]
  3. ATENOLOL [Concomitant]
  4. VITAMIN B6 [Concomitant]
  5. CALCIUM (CALCIUM) [Concomitant]
  6. DEFEROXAMINE (DEFEROXAMINE) [Concomitant]

REACTIONS (3)
  - AURA [None]
  - MACULAR OEDEMA [None]
  - VISUAL DISTURBANCE [None]
